FAERS Safety Report 12998659 (Version 1)
Quarter: 2016Q4

REPORT INFORMATION
  Report Type: Spontaneous
  Country: US (occurrence: US)
  Receive Date: 20161204
  Receipt Date: 20161204
  Transmission Date: 20170207
  Serious: Yes (Hospitalization)
  Sender: FDA-Public Use
  Company Number: None

PATIENT
  Age: 63 Year
  Sex: Female
  Weight: 83.7 kg

DRUGS (8)
  1. ALENDRONATE SODIUM. [Suspect]
     Active Substance: ALENDRONATE SODIUM
     Indication: OSTEOPOROSIS
  2. ANTI-HYPERTENSIVE [Concomitant]
     Active Substance: UNSPECIFIED INGREDIENT
  3. ANTIHISTAMINES [Concomitant]
     Active Substance: ANTIHISTAMINES NOS
  4. VITAMIN C [Concomitant]
     Active Substance: ASCORBIC ACID
  5. TYLENOL [Concomitant]
     Active Substance: ACETAMINOPHEN
  6. VITAMIN D [Concomitant]
     Active Substance: CHOLECALCIFEROL
  7. VITAMINS B3 [Concomitant]
  8. ARMOUR THYROID [Concomitant]
     Active Substance: THYROID, PORCINE

REACTIONS (4)
  - Fall [None]
  - Procedural pain [None]
  - Device extrusion [None]
  - Hip fracture [None]

NARRATIVE: CASE EVENT DATE: 20151227
